FAERS Safety Report 8443739-3 (Version None)
Quarter: 2012Q2

REPORT INFORMATION
  Report Type: 
  Country: None (occurrence: None)
  Receive Date: 20120618
  Receipt Date: 20120611
  Transmission Date: 20120825
  Serious: Yes (Death, Life-Threatening, Congenital Anomaly, Other)
  Sender: FDA-Public Use
  Company Number: DE-ELI_LILLY_AND_COMPANY-DE201206003464

PATIENT
  Weight: 0.56 kg

DRUGS (2)
  1. FLUOXETINE HYDROCHLORIDE [Suspect]
     Indication: DEPRESSION
     Dosage: 10 MG, QD
     Route: 064
  2. FLUOXETINE HYDROCHLORIDE [Suspect]
     Dosage: 10 MG, QD
     Route: 064

REACTIONS (5)
  - PULMONARY HYPOPLASIA [None]
  - FOETAL EXPOSURE DURING PREGNANCY [None]
  - STILLBIRTH [None]
  - POTTER'S SYNDROME [None]
  - OLIGOHYDRAMNIOS [None]
